FAERS Safety Report 20635683 (Version 1)
Quarter: 2022Q1

REPORT INFORMATION
  Report Type: Spontaneous
  Country: US (occurrence: None)
  Receive Date: 20220324
  Receipt Date: 20220324
  Transmission Date: 20220423
  Serious: No
  Sender: FDA-Public Use
  Company Number: None

PATIENT
  Age: 41 Year
  Sex: Female
  Weight: 60.75 kg

DRUGS (3)
  1. CABERGOLINE [Suspect]
     Active Substance: CABERGOLINE
     Indication: Blood prolactin increased
     Dosage: FREQUENCY : TWICE A WEEK;?
     Route: 048
     Dates: start: 20220101
  2. BENADRYL [Suspect]
     Active Substance: DIPHENHYDRAMINE HYDROCHLORIDE
     Indication: Multiple allergies
     Dosage: FREQUENCY : AS NEEDED;?
     Route: 048
     Dates: start: 20220324, end: 20220324
  3. Famciclovir as needed, 250 mg [Concomitant]

REACTIONS (4)
  - Drug interaction [None]
  - Sedation [None]
  - Fatigue [None]
  - Discomfort [None]

NARRATIVE: CASE EVENT DATE: 20220324
